FAERS Safety Report 19008679 (Version 2)
Quarter: 2021Q1

REPORT INFORMATION
  Report Type: Spontaneous
  Country: CN (occurrence: CN)
  Receive Date: 20210315
  Receipt Date: 20210329
  Transmission Date: 20210420
  Serious: Yes (Death, Other)
  Sender: FDA-Public Use
  Company Number: CN-BRACCO-2021CN00876

PATIENT
  Age: 77 Year
  Sex: Male

DRUGS (1)
  1. IOPAMIDOL 370 [Suspect]
     Active Substance: IOPAMIDOL
     Indication: COMPUTERISED TOMOGRAM
     Dosage: 75 ML, AT THE RATE OF 2.7 ML/SEC
     Route: 042
     Dates: start: 20210308, end: 20210308

REACTIONS (3)
  - Laryngeal oedema [Unknown]
  - Coma [Unknown]
  - Dyspnoea [Unknown]

NARRATIVE: CASE EVENT DATE: 20210308
